FAERS Safety Report 9992828 (Version 1)
Quarter: 2014Q1

REPORT INFORMATION
  Report Type: Report from Study
  Country: CA (occurrence: CA)
  Receive Date: 20140310
  Receipt Date: 20140310
  Transmission Date: 20141002
  Serious: Yes (Other)
  Sender: FDA-Public Use
  Company Number: CA-JNJFOC-20140302209

PATIENT
  Age: 27 Year
  Sex: Female
  Weight: 62 kg

DRUGS (10)
  1. REMICADE [Suspect]
     Indication: CROHN^S DISEASE
     Route: 042
     Dates: start: 20130809
  2. HYDROCORTISONE [Concomitant]
     Route: 042
  3. SYNTHROID [Concomitant]
     Route: 048
  4. CHOLECALCIFEROL [Concomitant]
     Route: 065
  5. LEVOTHYROXINE [Concomitant]
     Route: 065
  6. FLAGYL [Concomitant]
     Route: 065
  7. FOLIC ACID [Concomitant]
     Route: 065
  8. MULTIVITAMINS [Concomitant]
     Route: 065
  9. CLONAZEPAM [Concomitant]
     Route: 065
  10. REMERON [Concomitant]
     Route: 065

REACTIONS (2)
  - Deafness [Unknown]
  - Ear disorder [Unknown]
